FAERS Safety Report 23675604 (Version 2)
Quarter: 2024Q2

REPORT INFORMATION
  Report Type: Spontaneous
  Country: BE (occurrence: BE)
  Receive Date: 20240327
  Receipt Date: 20240404
  Transmission Date: 20240716
  Serious: Yes (Life-Threatening, Hospitalization, Other)
  Sender: FDA-Public Use
  Company Number: BE-ALKEM LABORATORIES LIMITED-BE-ALKEM-2024-04531

PATIENT
  Age: 49 Year
  Sex: Female

DRUGS (1)
  1. METHADONE HYDROCHLORIDE [Suspect]
     Active Substance: METHADONE HYDROCHLORIDE
     Indication: Product used for unknown indication
     Dosage: UNK
     Route: 065

REACTIONS (6)
  - Locked-in syndrome [Unknown]
  - Respiratory failure [Unknown]
  - Toxic leukoencephalopathy [Recovered/Resolved]
  - Overdose [Unknown]
  - Drug level increased [Unknown]
  - Blood lactic acid increased [Unknown]
